FAERS Safety Report 10756085 (Version 1)
Quarter: 2015Q1

REPORT INFORMATION
  Report Type: Spontaneous
  Country: US (occurrence: US)
  Receive Date: 20150202
  Receipt Date: 20150202
  Transmission Date: 20150721
  Serious: Yes (Other)
  Sender: FDA-Public Use
  Company Number: US-BAYER-2015-012869

PATIENT
  Sex: Male

DRUGS (2)
  1. CORICIDIN D [CHLORPHENAM MAL,PARACET,PHENYLPROPANOLAM HCL] [Suspect]
     Active Substance: ACETAMINOPHEN\CHLORPHENIRAMINE MALEATE\PHENYLEPHRINE HYDROCHLORIDE
     Indication: ILL-DEFINED DISORDER
     Dosage: UNK
     Route: 048
  2. ALKA-SELTZER PLUS COLD FORMULA [Suspect]
     Active Substance: ASPIRIN\CHLORPHENIRAMINE MALEATE\PHENYLEPHRINE BITARTRATE
     Indication: ILL-DEFINED DISORDER
     Dosage: UNK
     Route: 048

REACTIONS (4)
  - Coordination abnormal [None]
  - Dysarthria [None]
  - Cerebrovascular accident [None]
  - Hypoaesthesia [None]

NARRATIVE: CASE EVENT DATE: 19990520
